FAERS Safety Report 5369448-5 (Version None)
Quarter: 2007Q2

REPORT INFORMATION
  Report Type: 
  Country: None (occurrence: None)
  Receive Date: 20070625
  Receipt Date: 20070613
  Transmission Date: 20071010
  Serious: Yes (Other)
  Sender: FDA-Public Use
  Company Number: GBWYE893421JUN07

PATIENT
  Age: 17 Year
  Sex: Female

DRUGS (2)
  1. EFFEXOR [Suspect]
     Indication: DEPRESSION
     Dosage: UNKNOWN
     Dates: start: 19970714
  2. CANNABIS [Concomitant]
     Dosage: UNKNOWN

REACTIONS (8)
  - DIZZINESS [None]
  - DRUG INEFFECTIVE [None]
  - LETHARGY [None]
  - MIDDLE INSOMNIA [None]
  - NIGHT SWEATS [None]
  - NIGHTMARE [None]
  - SLEEP DISORDER [None]
  - SUICIDE ATTEMPT [None]
